FAERS Safety Report 8238359-X (Version None)
Quarter: 2012Q1

REPORT INFORMATION
  Report Type: 
  Country: None (occurrence: None)
  Receive Date: 20120326
  Receipt Date: 20120309
  Transmission Date: 20120608
  Serious: Yes (Other)
  Sender: FDA-Public Use
  Company Number: ES-1191015

PATIENT
  Age: 74 Year
  Sex: Female

DRUGS (15)
  1. BUPIVACAINA [Concomitant]
  2. MYDRIACYL [Concomitant]
  3. CEFTAZIDIMA [Concomitant]
  4. BETADINE [Concomitant]
  5. BSS [Concomitant]
  6. LIQUIFILM [Concomitant]
  7. TOBRADEX [Concomitant]
  8. ACTOCORTINA [Concomitant]
  9. VIGAMOX [Suspect]
     Dosage: 0.2-0.3 ML OF DILUTION 3 CC VIGAMOX + 3 CC ACTOCORTINA INTRAOCULAR)
     Route: 031
     Dates: start: 20120222, end: 20120222
  10. AMIKACINA [Concomitant]
  11. VISCOAT [Concomitant]
  12. ACTOCRTINA [Concomitant]
  13. OFTALAR [Concomitant]
  14. LIDOCAINA [Concomitant]
  15. VANCOMICINA [Concomitant]

REACTIONS (6)
  - ENDOPHTHALMITIS [None]
  - ANTERIOR CHAMBER FIBRIN [None]
  - OFF LABEL USE [None]
  - HYPOPYON [None]
  - CORNEAL OEDEMA [None]
  - VITRITIS [None]
